FAERS Safety Report 10186027 (Version 2)
Quarter: 2014Q3

REPORT INFORMATION
  Report Type: Spontaneous
  Country: US (occurrence: US)
  Receive Date: 20140521
  Receipt Date: 20140811
  Transmission Date: 20150326
  Serious: Yes (Death)
  Sender: FDA-Public Use
  Company Number: US-TEVA-482561USA

PATIENT
  Age: 70 Year

DRUGS (2)
  1. CARBIDOPA W/LEVODOPA [Concomitant]
     Active Substance: CARBIDOPA\LEVODOPA
     Dosage: 25/100 MG
  2. AZILECT [Suspect]
     Active Substance: RASAGILINE MESYLATE
     Indication: PARKINSON^S DISEASE
     Dosage: .5 MILLIGRAM DAILY;
     Dates: start: 20140506

REACTIONS (3)
  - Freezing phenomenon [Unknown]
  - Mobility decreased [Unknown]
  - Completed suicide [Fatal]

NARRATIVE: CASE EVENT DATE: 201405
